FAERS Safety Report 19520904 (Version 1)
Quarter: 2021Q3

REPORT INFORMATION
  Report Type: Spontaneous
  Country: BR (occurrence: BR)
  Receive Date: 20210712
  Receipt Date: 20210712
  Transmission Date: 20211014
  Serious: Yes (Other)
  Sender: FDA-Public Use
  Company Number: BR-ORGANON-O2107BRA000423

PATIENT
  Sex: Female

DRUGS (1)
  1. AVIANT EFE [Suspect]
     Active Substance: DESLORATADINE\PSEUDOEPHEDRINE SULFATE
     Indication: TINNITUS
     Dosage: 1 TABLET (REPORTED AS 2.5 MG 120 MG), DAILY
     Route: 048
     Dates: start: 20210702, end: 20210702

REACTIONS (2)
  - Hallucination [Unknown]
  - Product use in unapproved indication [Unknown]

NARRATIVE: CASE EVENT DATE: 20210702
